FAERS Safety Report 15734384 (Version 1)
Quarter: 2018Q4

REPORT INFORMATION
  Report Type: Spontaneous
  Country: FR (occurrence: FR)
  Receive Date: 20181218
  Receipt Date: 20181218
  Transmission Date: 20190205
  Serious: Yes (Hospitalization)
  Sender: FDA-Public Use
  Company Number: FR-PFIZER INC-2018513477

PATIENT
  Age: 44 Year
  Sex: Male
  Weight: 90 kg

DRUGS (4)
  1. BROMAZEPAM [Suspect]
     Active Substance: BROMAZEPAM
     Dosage: 180 MG, SINGLE
     Route: 048
     Dates: start: 20181109, end: 20181109
  2. LYRICA [Suspect]
     Active Substance: PREGABALIN
     Dosage: 550 MG, SINGLE
     Route: 048
     Dates: start: 20181109, end: 20181109
  3. KLIPAL CODEINE [Suspect]
     Active Substance: ACETAMINOPHEN\CODEINE PHOSPHATE
     Dosage: 12 DF, SINGLE
     Route: 048
     Dates: start: 20181109, end: 20181109
  4. DAFALGAN [Suspect]
     Active Substance: ACETAMINOPHEN
     Dosage: 8 G, SINGLE
     Route: 048
     Dates: start: 20181109, end: 20181109

REACTIONS (4)
  - Disease recurrence [Unknown]
  - Somnolence [Recovered/Resolved]
  - Hypothermia [Recovered/Resolved]
  - Suicide attempt [Unknown]

NARRATIVE: CASE EVENT DATE: 20181109
